FAERS Safety Report 24645460 (Version 1)
Quarter: 2024Q4

REPORT INFORMATION
  Report Type: Spontaneous
  Country: ES (occurrence: ES)
  Receive Date: 20241121
  Receipt Date: 20241121
  Transmission Date: 20250114
  Serious: No
  Sender: ALKEM
  Company Number: ES-ALKEM LABORATORIES LIMITED-ES-ALKEM-2024-10728

PATIENT
  Age: 29 Year
  Sex: Female

DRUGS (5)
  1. OLANZAPINE [Suspect]
     Active Substance: OLANZAPINE
     Indication: Schizophrenia
     Dosage: 30 MILLIGRAM, QD
     Route: 065
  2. CLOZAPINE [Suspect]
     Active Substance: CLOZAPINE
     Indication: Schizophrenia
     Dosage: 400 MG/DAY
     Route: 065
  3. CLOZAPINE [Suspect]
     Active Substance: CLOZAPINE
     Dosage: UNK (REDUCED DOSE), REDUCED AT A WEEKLY RATE OF 100 MG UNTIL DISCONTINUED
     Route: 065
  4. CARIPRAZINE [Suspect]
     Active Substance: CARIPRAZINE
     Indication: Schizophrenia
     Dosage: 1.5 MG/DAY
     Route: 065
  5. CARIPRAZINE [Suspect]
     Active Substance: CARIPRAZINE
     Dosage: QD, (WEEKLY INCREASES OF 1.5 MG UNTIL A DOSE OF 6 MG DAILY WAS REACHED)
     Route: 065

REACTIONS (8)
  - Blunted affect [Recovering/Resolving]
  - Apathy [Recovering/Resolving]
  - Sedation [Recovering/Resolving]
  - Somnolence [Recovering/Resolving]
  - Salivary hypersecretion [Recovering/Resolving]
  - Headache [Recovering/Resolving]
  - Therapy partial responder [Unknown]
  - Therapy non-responder [Unknown]
